FAERS Safety Report 5747631-4 (Version None)
Quarter: 2008Q2

REPORT INFORMATION
  Report Type: 
  Country: None (occurrence: None)
  Receive Date: 20080523
  Receipt Date: 20080521
  Transmission Date: 20081010
  Serious: Yes (Other)
  Sender: FDA-Public Use
  Company Number: GB-ABBOTT-08P-167-0452206-00

PATIENT
  Age: 70 Year

DRUGS (1)
  1. ADALIMUMAB [Suspect]
     Indication: CROHN'S DISEASE

REACTIONS (1)
  - NON-SMALL CELL LUNG CANCER [None]
